FAERS Safety Report 24947718 (Version 2)
Quarter: 2025Q3

REPORT INFORMATION
  Report Type: Spontaneous
  Country: US (occurrence: None)
  Receive Date: 20250210
  Receipt Date: 20250708
  Transmission Date: 20251021
  Serious: No
  Sender: MAIA PHARMACEUTICALS
  Company Number: US-ARIS GLOBAL-MAI202408-000027

PATIENT
  Sex: Female

DRUGS (1)
  1. LEVOTHYROXINE SODIUM [Suspect]
     Active Substance: LEVOTHYROXINE SODIUM
     Indication: Product used for unknown indication
     Route: 030

REACTIONS (1)
  - Off label use [Unknown]
